FAERS Safety Report 21843578 (Version 4)
Quarter: 2023Q2

REPORT INFORMATION
  Report Type: Spontaneous
  Country: US (occurrence: US)
  Receive Date: 20230110
  Receipt Date: 20230522
  Transmission Date: 20230721
  Serious: Yes (Hospitalization)
  Sender: FDA-Public Use
  Company Number: US-PFIZER INC-PV202200008347

PATIENT
  Age: 75 Year
  Sex: Female

DRUGS (2)
  1. IBRANCE [Suspect]
     Active Substance: PALBOCICLIB
     Indication: Breast cancer female
     Dosage: 125 MG
  2. IBRANCE [Suspect]
     Active Substance: PALBOCICLIB
     Dosage: 75 MG
     Dates: end: 2022

REACTIONS (7)
  - Influenza [Unknown]
  - Urinary tract infection [Unknown]
  - Full blood count decreased [Unknown]
  - Infection [Unknown]
  - White blood cell count decreased [Unknown]
  - Illness [Unknown]
  - Product dose omission issue [Unknown]
